FAERS Safety Report 11237645 (Version 1)
Quarter: 2015Q3

REPORT INFORMATION
  Report Type: Spontaneous
  Country: US (occurrence: US)
  Receive Date: 20150703
  Receipt Date: 20150703
  Transmission Date: 20151125
  Serious: Yes (Death)
  Sender: FDA-Public Use
  Company Number: US-JNJFOC-20150700299

PATIENT
  Sex: Male

DRUGS (1)
  1. CHILDRENS SUDAFED NASAL DECONGESTANT [Suspect]
     Active Substance: PSEUDOEPHEDRINE HYDROCHLORIDE
     Indication: MULTIPLE ALLERGIES
     Dosage: 1/4-1/2 TEASPOON, AS NEEDED
     Route: 048

REACTIONS (4)
  - Death [Fatal]
  - Wrong drug administered [Unknown]
  - Product quality issue [None]
  - Drug administered to patient of inappropriate age [None]
